FAERS Safety Report 15322072 (Version 2)
Quarter: 2018Q4

REPORT INFORMATION
  Report Type: Spontaneous
  Country: US (occurrence: US)
  Receive Date: 20180827
  Receipt Date: 20181114
  Transmission Date: 20190204
  Serious: Yes (Other)
  Sender: FDA-Public Use
  Company Number: US-SA-2018SA234848

PATIENT
  Age: 49 Year
  Sex: Female

DRUGS (2)
  1. TAXOTERE [Suspect]
     Active Substance: DOCETAXEL
     Indication: BREAST CANCER FEMALE
     Dosage: UNK, QCY
     Route: 042
     Dates: start: 20110721, end: 20110721
  2. TAXOTERE [Suspect]
     Active Substance: DOCETAXEL
     Dosage: UNK, QCY
     Route: 042
     Dates: start: 20111227, end: 20111227

REACTIONS (2)
  - Alopecia [Not Recovered/Not Resolved]
  - Psychological trauma [Unknown]
